FAERS Safety Report 23281356 (Version 6)
Quarter: 2024Q4

REPORT INFORMATION
  Report Type: Report from Study
  Country: ZA (occurrence: ZA)
  Receive Date: 20231211
  Receipt Date: 20241223
  Transmission Date: 20250115
  Serious: Yes (Hospitalization, Other)
  Sender: SANOFI AVENTIS
  Company Number: ZA-SA-SAC20231206000097

PATIENT
  Age: 68 Year
  Sex: Male

DRUGS (4)
  1. INSULIN GLULISINE [Suspect]
     Active Substance: INSULIN GLULISINE
     Indication: Type 2 diabetes mellitus
     Dosage: 42 U, TID; (AS-40 UNITS | BL-40 UNITS | BB-40 UNITS)
     Route: 058
     Dates: start: 20081201
  2. INSULIN GLULISINE [Suspect]
     Active Substance: INSULIN GLULISINE
     Dosage: 62 IU, HS
     Route: 058
     Dates: start: 20231128
  3. INSULIN GLARGINE [Suspect]
     Active Substance: INSULIN GLARGINE
     Indication: Type 2 diabetes mellitus
     Dosage: 60 U, HS
     Route: 058
     Dates: start: 20081201
  4. INSULIN GLARGINE [Suspect]
     Active Substance: INSULIN GLARGINE
     Dosage: 62 U, HS
     Route: 058

REACTIONS (9)
  - Nephrolithiasis [Recovering/Resolving]
  - Localised lipodystrophy [Not Recovered/Not Resolved]
  - Blood glucose increased [Recovering/Resolving]
  - Device operational issue [Unknown]
  - Pain in extremity [Not Recovered/Not Resolved]
  - Weight decreased [Recovering/Resolving]
  - Injection site induration [Recovering/Resolving]
  - Arthralgia [Not Recovered/Not Resolved]
  - Hyperglycaemia [Not Recovered/Not Resolved]

NARRATIVE: CASE EVENT DATE: 20240502
